FAERS Safety Report 14998275 (Version 2)
Quarter: 2018Q2

REPORT INFORMATION
  Report Type: Spontaneous
  Country: JP (occurrence: JP)
  Receive Date: 20180611
  Receipt Date: 20180619
  Transmission Date: 20180711
  Serious: Yes (Other)
  Sender: FDA-Public Use
  Company Number: JP-ALLERGAN-1830189US

PATIENT
  Age: 8 Decade

DRUGS (1)
  1. URSODEOXYCHOLIC ACID - BP [Suspect]
     Active Substance: URSODIOL
     Indication: HEPATITIS ALCOHOLIC
     Route: 048

REACTIONS (2)
  - Off label use [Unknown]
  - Interstitial lung disease [Unknown]
